FAERS Safety Report 4648731-2 (Version None)
Quarter: 2005Q2

REPORT INFORMATION
  Report Type: 
  Country: None (occurrence: None)
  Receive Date: 20050429
  Receipt Date: 20050407
  Transmission Date: 20051028
  Serious: Yes (Death)
  Sender: FDA-Public Use
  Company Number: PHBS2005JP04922

PATIENT
  Age: 75 Year
  Sex: Male
  Weight: 65 kg

DRUGS (11)
  1. NEORAL [Suspect]
     Indication: PEMPHIGOID
     Dosage: 100 MG/DAY
     Route: 048
     Dates: start: 20050222, end: 20050228
  2. NEORAL [Suspect]
     Dosage: 200 MG/DAY
     Route: 048
     Dates: start: 20050301, end: 20050310
  3. NEORAL [Suspect]
     Dosage: 50 MG/DAY
     Route: 048
     Dates: start: 20050315, end: 20050404
  4. PREDNISOLONE [Suspect]
     Indication: PEMPHIGOID
     Dosage: 20 MG/DAY
     Route: 048
     Dates: start: 20050118, end: 20050125
  5. PREDNISOLONE [Suspect]
     Dosage: 60 MG/DAY
     Route: 048
     Dates: start: 20050125, end: 20050201
  6. PREDNISOLONE [Suspect]
     Dosage: 50 MG/DAY
     Route: 048
     Dates: start: 20050202, end: 20050203
  7. PREDNISOLONE [Suspect]
     Dosage: 60 MG/DAY
     Route: 048
     Dates: start: 20050204, end: 20050208
  8. PREDNISOLONE [Suspect]
     Dosage: 50 MG/DAY
     Route: 048
     Dates: start: 20050222, end: 20050316
  9. RINDERON [Suspect]
     Indication: PEMPHIGOID
     Dosage: 4 MG/D
     Route: 048
     Dates: start: 20050209, end: 20050214
  10. PREDNISOLONE [Suspect]
     Dosage: 50 MG/DAY
     Route: 042
     Dates: start: 20050215, end: 20050221
  11. PREDNISOLONE [Suspect]
     Dosage: 20 MG/DAY
     Route: 065
     Dates: start: 20050407

REACTIONS (14)
  - C-REACTIVE PROTEIN INCREASED [None]
  - CARDIAC FAILURE [None]
  - CYTOMEGALOVIRUS ANTIGEN POSITIVE [None]
  - FUNGAL DNA TEST POSITIVE [None]
  - LUNG INFECTION [None]
  - METHICILLIN-RESISTANT STAPHYLOCOCCAL AUREUS TEST POSITIVE [None]
  - PNEUMOCYSTIS JIROVECI PNEUMONIA [None]
  - PNEUMONIA CYTOMEGALOVIRAL [None]
  - PRODUCTIVE COUGH [None]
  - PULMONARY CAVITATION [None]
  - RESPIRATORY FAILURE [None]
  - SEPSIS [None]
  - SHOCK [None]
  - WHITE BLOOD CELL COUNT INCREASED [None]
